FAERS Safety Report 16397756 (Version 4)
Quarter: 2019Q2

REPORT INFORMATION
  Report Type: Spontaneous
  Country: US (occurrence: US)
  Receive Date: 20190606
  Receipt Date: 20190621
  Transmission Date: 20190711
  Serious: Yes (Hospitalization, Other)
  Sender: FDA-Public Use
  Company Number: US-ASTRAZENECA-2018SF34832

PATIENT
  Age: 734 Month
  Sex: Female
  Weight: 115.2 kg

DRUGS (31)
  1. NEXIUM [Suspect]
     Active Substance: ESOMEPRAZOLE MAGNESIUM
     Route: 048
     Dates: start: 20030826, end: 20160101
  2. GABAPENTIN. [Concomitant]
     Active Substance: GABAPENTIN
  3. CEPHALEXIN. [Concomitant]
     Active Substance: CEPHALEXIN
  4. BUMETANIDE. [Concomitant]
     Active Substance: BUMETANIDE
  5. PREVACID [Suspect]
     Active Substance: LANSOPRAZOLE
     Route: 065
     Dates: start: 200308, end: 201601
  6. LANTUS [Concomitant]
     Active Substance: INSULIN GLARGINE
  7. VITAMIN D3 [Concomitant]
     Active Substance: CHOLECALCIFEROL
  8. NEXIUM 24HR [Suspect]
     Active Substance: ESOMEPRAZOLE MAGNESIUM
     Route: 048
     Dates: start: 200308, end: 201601
  9. PROTONIX [Suspect]
     Active Substance: PANTOPRAZOLE SODIUM
     Route: 065
     Dates: start: 200308, end: 201601
  10. CARVEDILOL. [Concomitant]
     Active Substance: CARVEDILOL
  11. ULORIC [Concomitant]
     Active Substance: FEBUXOSTAT
  12. CYMBALTA [Concomitant]
     Active Substance: DULOXETINE HYDROCHLORIDE
  13. PRILOSEC OTC [Suspect]
     Active Substance: OMEPRAZOLE MAGNESIUM
     Route: 048
     Dates: start: 200308, end: 201601
  14. CALCIUM [Concomitant]
     Active Substance: CALCIUM
  15. NEXIUM [Suspect]
     Active Substance: ESOMEPRAZOLE MAGNESIUM
     Route: 048
     Dates: start: 200308, end: 201601
  16. PREVACID 24 HR [Suspect]
     Active Substance: LANSOPRAZOLE
     Route: 065
     Dates: start: 200308, end: 201601
  17. ATORVASTATIN [Concomitant]
     Active Substance: ATORVASTATIN
  18. AMLODIPINE [Concomitant]
     Active Substance: AMLODIPINE BESYLATE
  19. HYDROCHLOROTHIAZIDE. [Concomitant]
     Active Substance: HYDROCHLOROTHIAZIDE
  20. ATELVIA [Concomitant]
     Active Substance: RISEDRONATE SODIUM
  21. FOSINOPRIL [Concomitant]
     Active Substance: FOSINOPRIL
  22. LYRICA [Concomitant]
     Active Substance: PREGABALIN
  23. VICODIN [Concomitant]
     Active Substance: ACETAMINOPHEN\HYDROCODONE BITARTRATE
  24. CLOTRIMAZOLE. [Concomitant]
     Active Substance: CLOTRIMAZOLE
  25. DULOXETINE. [Concomitant]
     Active Substance: DULOXETINE
  26. PRILOSEC [Suspect]
     Active Substance: OMEPRAZOLE MAGNESIUM
     Route: 048
     Dates: start: 200308, end: 201601
  27. DEXILANT [Suspect]
     Active Substance: DEXLANSOPRAZOLE
     Route: 065
     Dates: start: 200308, end: 201601
  28. HUMALOG [Concomitant]
     Active Substance: INSULIN LISPRO
  29. BUMETANIDE. [Concomitant]
     Active Substance: BUMETANIDE
  30. ATORVASTATIN [Concomitant]
     Active Substance: ATORVASTATIN
  31. CEFPROZIL. [Concomitant]
     Active Substance: CEFPROZIL

REACTIONS (9)
  - End stage renal disease [Unknown]
  - Dyspepsia [Unknown]
  - Tubulointerstitial nephritis [Unknown]
  - Renal injury [Unknown]
  - Acute kidney injury [Unknown]
  - Chronic kidney disease [Unknown]
  - Nephrogenic anaemia [Unknown]
  - Renal failure [Unknown]
  - Hyperparathyroidism secondary [Unknown]

NARRATIVE: CASE EVENT DATE: 201008
